FAERS Safety Report 7237334-1 (Version None)
Quarter: 2011Q1

REPORT INFORMATION
  Report Type: 
  Country: None (occurrence: None)
  Receive Date: 20110121
  Receipt Date: 20110103
  Transmission Date: 20110831
  Serious: Yes (Hospitalization, Other)
  Sender: FDA-Public Use
  Company Number: US-PFIZER INC-US-WYE-H10594209

PATIENT
  Sex: Female
  Weight: 93 kg

DRUGS (7)
  1. KLONOPIN [Suspect]
     Indication: TREMOR
     Dosage: UNKNOWN TO 30-JUL-2009; RESTARTED IN AUG-2009
     Route: 065
  2. TRAZODONE [Suspect]
     Dosage: 1 DOSE 1 TIMER PER 1 DAY FROM UNKNOWN TO 30-JUL-2009; RESTARTED IN AUG-2009
     Route: 065
  3. EFFEXOR [Suspect]
     Indication: HOT FLUSH
     Dosage: UNKNOWN DOSE FROM UNKNOWN TO 30-JUL-2009; RESTARTED IN AUG-2009
     Route: 048
  4. REBIF [Suspect]
     Indication: MULTIPLE SCLEROSIS
     Dosage: 44 UG, 3X/WEEK
     Route: 058
     Dates: start: 20090625
  5. NEURONTIN [Suspect]
     Dosage: UNK
     Dates: start: 20090801
  6. TRAMADOL [Suspect]
     Indication: PAIN
     Dosage: 1 DOSE 1 TIMER PER 1 DAY FROM UNKNOWN TO 30-JUL-2009; RESTARTED IN AUG-2009
     Route: 065
  7. NEURONTIN [Suspect]
     Dosage: UNK
     Route: 065
     Dates: start: 20000101, end: 20090730

REACTIONS (6)
  - FEELING OF BODY TEMPERATURE CHANGE [None]
  - ACCIDENTAL OVERDOSE [None]
  - RETCHING [None]
  - DRUG WITHDRAWAL SYNDROME [None]
  - LOSS OF CONSCIOUSNESS [None]
  - CONVULSION [None]
